FAERS Safety Report 7338504-4 (Version None)
Quarter: 2011Q1

REPORT INFORMATION
  Report Type: 
  Country: None (occurrence: None)
  Receive Date: 20110308
  Receipt Date: 20110228
  Transmission Date: 20110831
  Serious: Yes (Other)
  Sender: FDA-Public Use
  Company Number: CHPA2011US03482

PATIENT
  Age: 47 Year
  Sex: Female
  Weight: 53.968 kg

DRUGS (1)
  1. CONTROL PLP [Suspect]
     Indication: SMOKING CESSATION THERAPY
     Dosage: 21 MG, QD
     Route: 062
     Dates: start: 20110226, end: 20110227

REACTIONS (11)
  - HEADACHE [None]
  - OTORRHOEA [None]
  - COUGH [None]
  - PAIN [None]
  - PRURITUS GENERALISED [None]
  - DYSPHONIA [None]
  - GASTROINTESTINAL MOTILITY DISORDER [None]
  - WEIGHT DECREASED [None]
  - VISION BLURRED [None]
  - HAEMATEMESIS [None]
  - RASH MACULO-PAPULAR [None]
